FAERS Safety Report 8145170-7 (Version None)
Quarter: 2012Q1

REPORT INFORMATION
  Report Type: 
  Country: None (occurrence: None)
  Receive Date: 20120217
  Receipt Date: 20120214
  Transmission Date: 20120608
  Serious: Yes (Other)
  Sender: FDA-Public Use
  Company Number: PHHY2011US03076

PATIENT
  Sex: Female

DRUGS (10)
  1. BYSTOLIC [Concomitant]
     Dosage: 5 MG, UNK
  2. VERAPAMIL [Concomitant]
     Dosage: 240 MG, UNK
  3. PLATELET AGGREGATION INHIBITORS [Concomitant]
  4. ZOLOFT [Concomitant]
     Dosage: 50 MG, UNK
  5. CRESTOR [Concomitant]
     Dosage: 10 MG, UNK
  6. DIOVAN [Suspect]
     Dosage: 80 MG, DAILY
  7. WATER PILLS [Concomitant]
  8. ASPIRIN [Concomitant]
  9. HYDROCHLOROTHIAZIDE [Concomitant]
  10. NEXIUM [Concomitant]

REACTIONS (4)
  - BREAST CANCER [None]
  - MALAISE [None]
  - BLOOD PRESSURE INCREASED [None]
  - NASOPHARYNGITIS [None]
